FAERS Safety Report 4774421-1 (Version None)
Quarter: 2005Q3

REPORT INFORMATION
  Report Type: 
  Country: None (occurrence: None)
  Receive Date: 20050914
  Receipt Date: 20050801
  Transmission Date: 20060218
  Serious: Yes (Other)
  Sender: FDA-Public Use
  Company Number: 412866

PATIENT
  Sex: Female

DRUGS (1)
  1. BONIVA [Suspect]
     Dates: start: 20050615

REACTIONS (3)
  - INFLUENZA LIKE ILLNESS [None]
  - PHARYNGOLARYNGEAL PAIN [None]
  - PRURITUS [None]
